FAERS Safety Report 8912967 (Version 1)
Quarter: 2012Q4

REPORT INFORMATION
  Report Type: 
  Country: MY (occurrence: MY)
  Receive Date: 20121116
  Receipt Date: 20121116
  Transmission Date: 20130627
  Serious: Yes (Life-Threatening, Hospitalization, Other)
  Sender: FDA-Public Use
  Company Number: MY-ASTRAZENECA-2012SE85881

PATIENT
  Age: 31 Year
  Sex: Male
  Weight: 60 kg

DRUGS (1)
  1. QUETIAPINE [Suspect]
     Route: 048

REACTIONS (9)
  - Overdose [Unknown]
  - Unresponsive to stimuli [Unknown]
  - Dry mouth [Unknown]
  - Mucosal dryness [Unknown]
  - Haemodynamic instability [Recovered/Resolved]
  - Hyperglycaemia [Recovered/Resolved]
  - Metabolic acidosis [Recovered/Resolved]
  - Pneumothorax [Recovered/Resolved]
  - Grand mal convulsion [Recovered/Resolved]
